FAERS Safety Report 21968534 (Version 1)
Quarter: 2023Q1

REPORT INFORMATION
  Report Type: Spontaneous
  Country: US (occurrence: None)
  Receive Date: 20230208
  Receipt Date: 20230208
  Transmission Date: 20230417
  Serious: No
  Sender: FDA-Public Use
  Company Number: None

PATIENT

DRUGS (1)
  1. PROPOFOL [Suspect]
     Active Substance: PROPOFOL

REACTIONS (5)
  - Product design issue [None]
  - Manufacturing production issue [None]
  - Product container seal issue [None]
  - Product closure issue [None]
  - Accidental exposure to product [None]
